FAERS Safety Report 21081570 (Version 1)
Quarter: 2022Q3

REPORT INFORMATION
  Report Type: Spontaneous
  Country: US (occurrence: US)
  Receive Date: 20220714
  Receipt Date: 20220714
  Transmission Date: 20221027
  Serious: Yes (Hospitalization, Congenital Anomaly, Other)
  Sender: FDA-Public Use
  Company Number: US-INDIVIOR EUROPE LIMITED-INDV-134960-2022

PATIENT
  Sex: Male

DRUGS (4)
  1. BUPRENORPHINE [Suspect]
     Active Substance: BUPRENORPHINE
     Indication: Drug use disorder
     Dosage: UNK
     Route: 064
  2. NICOTINE [Suspect]
     Active Substance: NICOTINE
     Indication: Product used for unknown indication
     Dosage: UNK
     Route: 064
  3. GABAPENTIN [Suspect]
     Active Substance: GABAPENTIN
     Indication: Product used for unknown indication
     Dosage: UNK
     Route: 064
  4. OXYCODONE [Suspect]
     Active Substance: OXYCODONE
     Indication: Product used for unknown indication
     Dosage: UNK
     Route: 064

REACTIONS (10)
  - Premature baby [Recovered/Resolved]
  - Otospondylomegaepiphyseal dysplasia [Unknown]
  - Cleft palate [Unknown]
  - Autism spectrum disorder [Unknown]
  - Developmental delay [Unknown]
  - Conductive deafness [Unknown]
  - Poor feeding infant [Unknown]
  - Drug withdrawal syndrome neonatal [Unknown]
  - Obstructive sleep apnoea syndrome [Unknown]
  - Foetal exposure during pregnancy [Recovered/Resolved]
